FAERS Safety Report 6096911-4 (Version None)
Quarter: 2009Q1

REPORT INFORMATION
  Report Type: 
  Country: None (occurrence: None)
  Receive Date: 20090227
  Receipt Date: 20090216
  Transmission Date: 20090719
  Serious: Yes (Death)
  Sender: FDA-Public Use
  Company Number: PE-PFIZER INC-2009171047

PATIENT

DRUGS (2)
  1. ALDACTONE [Suspect]
     Indication: CARDIAC FAILURE
     Dates: start: 20081114, end: 20090209
  2. SULPERAZON [Suspect]
     Dosage: UNK
     Dates: start: 20081104, end: 20090209

REACTIONS (1)
  - DEATH [None]
